FAERS Safety Report 7229760-1 (Version None)
Quarter: 2011Q1

REPORT INFORMATION
  Report Type: 
  Country: None (occurrence: None)
  Receive Date: 20110117
  Receipt Date: 20110112
  Transmission Date: 20110831
  Serious: Yes (Other)
  Sender: FDA-Public Use
  Company Number: GB-PFIZER INC-2011008571

PATIENT
  Age: 26 Year
  Sex: Male

DRUGS (1)
  1. CHAMPIX [Suspect]
     Dosage: 1 MG, 2X/DAY
     Dates: end: 20110102

REACTIONS (2)
  - SUICIDAL IDEATION [None]
  - PERSONALITY CHANGE [None]
